FAERS Safety Report 7765667-9 (Version None)
Quarter: 2011Q3

REPORT INFORMATION
  Report Type: 
  Country: None (occurrence: None)
  Receive Date: 20110921
  Receipt Date: 20110916
  Transmission Date: 20111222
  Serious: Yes (Hospitalization, Other)
  Sender: FDA-Public Use
  Company Number: US-PFIZER INC-2011220311

PATIENT
  Sex: Female
  Weight: 108.39 kg

DRUGS (3)
  1. CELEXA [Concomitant]
     Dosage: UNK
  2. XANAX [Concomitant]
     Dosage: UNK
  3. LYRICA [Suspect]
     Indication: FIBROMYALGIA
     Dosage: 300 MG, 2X/DAY
     Route: 048

REACTIONS (7)
  - DYSKINESIA [None]
  - HALLUCINATIONS, MIXED [None]
  - ACTIVITIES OF DAILY LIVING IMPAIRED [None]
  - HYPOKINESIA [None]
  - FEELING ABNORMAL [None]
  - EATING DISORDER [None]
  - INSOMNIA [None]
